FAERS Safety Report 15782682 (Version 2)
Quarter: 2019Q1

REPORT INFORMATION
  Report Type: Spontaneous
  Country: US (occurrence: US)
  Receive Date: 20190102
  Receipt Date: 20190130
  Transmission Date: 20190417
  Serious: Yes (Other)
  Sender: FDA-Public Use
  Company Number: US-AKORN PHARMACEUTICALS-2018AKN02100

PATIENT
  Sex: Male
  Weight: 72.11 kg

DRUGS (3)
  1. MYORISAN [Suspect]
     Active Substance: ISOTRETINOIN
     Dosage: 30 MG, 2X/DAY
     Dates: start: 20180921, end: 20181224
  2. MYORISAN [Suspect]
     Active Substance: ISOTRETINOIN
     Dosage: 30 MG, 1X/DAY
     Dates: start: 20180830, end: 2018
  3. PROACTIV RENEWING CLEANSER [Concomitant]
     Active Substance: BENZOYL PEROXIDE

REACTIONS (4)
  - Dry skin [Recovered/Resolved]
  - Anger [Recovering/Resolving]
  - Depression [Recovering/Resolving]
  - Lip dry [Recovered/Resolved]

NARRATIVE: CASE EVENT DATE: 2018
